FAERS Safety Report 25713194 (Version 1)
Quarter: 2025Q3

REPORT INFORMATION
  Report Type: Report from Study
  Country: CA (occurrence: CA)
  Receive Date: 20250822
  Receipt Date: 20250822
  Transmission Date: 20251020
  Serious: Yes (Hospitalization)
  Sender: ABBVIE
  Company Number: CA-ABBVIE-6423340

PATIENT
  Age: 37 Year
  Sex: Female

DRUGS (1)
  1. SKYRIZI [Suspect]
     Active Substance: RISANKIZUMAB-RZAA
     Indication: Psoriasis
     Dosage: FORM STRENGTH 150MG/ML
     Route: 058

REACTIONS (1)
  - Spinal column injury [Unknown]

NARRATIVE: CASE EVENT DATE: 20250815
